FAERS Safety Report 11238778 (Version 1)
Quarter: 2015Q3

REPORT INFORMATION
  Report Type: Spontaneous
  Country: GB (occurrence: GB)
  Receive Date: 20150706
  Receipt Date: 20150706
  Transmission Date: 20151125
  Serious: Yes (Other)
  Sender: FDA-Public Use
  Company Number: GB-PAR PHARMACEUTICAL, INC-2015SCPR014098

PATIENT

DRUGS (1)
  1. VASOSTRICT [Suspect]
     Active Substance: VASOPRESSIN
     Indication: HAEMOSTASIS
     Dosage: UNK UNK, UNKNOWN
     Route: 065

REACTIONS (2)
  - Hypotension [Unknown]
  - Product use issue [Unknown]
